FAERS Safety Report 9462326 (Version 1)
Quarter: 2013Q3

REPORT INFORMATION
  Report Type: Report from Study
  Country: CA (occurrence: CA)
  Receive Date: 20130816
  Receipt Date: 20130816
  Transmission Date: 20140515
  Serious: Yes (Hospitalization, Other)
  Sender: FDA-Public Use
  Company Number: CA-ABBOTT-13P-028-1132316-00

PATIENT
  Age: 22 Year
  Sex: Female

DRUGS (1)
  1. HUMIRA [Suspect]
     Indication: CROHN^S DISEASE
     Route: 058
     Dates: start: 20120614, end: 20130315

REACTIONS (5)
  - Intestinal obstruction [Recovered/Resolved]
  - Post procedural sepsis [Recovered/Resolved]
  - Surgery [Unknown]
  - Surgery [Unknown]
  - Surgery [Unknown]
